FAERS Safety Report 17577743 (Version 1)
Quarter: 2020Q1

REPORT INFORMATION
  Report Type: Spontaneous
  Country: US (occurrence: US)
  Receive Date: 20200319
  Receipt Date: 20200319
  Transmission Date: 20200409
  Serious: Yes (Hospitalization)
  Sender: FDA-Public Use
  Company Number: None

PATIENT
  Age: 70 Year
  Sex: Male

DRUGS (1)
  1. BUMETANIDE (BUMETANIDE 1MG TAB) [Suspect]
     Active Substance: BUMETANIDE
     Indication: CARDIAC FAILURE CONGESTIVE
     Route: 048
     Dates: start: 20200206

REACTIONS (5)
  - Hypoxia [None]
  - Presyncope [None]
  - Hypovolaemia [None]
  - Acute kidney injury [None]
  - Blood creatinine increased [None]

NARRATIVE: CASE EVENT DATE: 20200302
